FAERS Safety Report 25067971 (Version 1)
Quarter: 2025Q1

REPORT INFORMATION
  Report Type: Spontaneous
  Country: DE (occurrence: DE)
  Receive Date: 20250312
  Receipt Date: 20250312
  Transmission Date: 20250409
  Serious: Yes (Life-Threatening)
  Sender: MYLAN
  Company Number: DE-MYLANLABS-2025M1018502

PATIENT
  Age: 45 Day
  Sex: Male

DRUGS (11)
  1. AMIODARONE [Suspect]
     Active Substance: AMIODARONE
     Indication: Supraventricular tachycardia
  2. FLECAINIDE [Suspect]
     Active Substance: FLECAINIDE
     Indication: Supraventricular tachycardia
  3. METOPROLOL [Suspect]
     Active Substance: METOPROLOL
     Indication: Supraventricular tachycardia
  4. ESMOLOL [Suspect]
     Active Substance: ESMOLOL HYDROCHLORIDE
     Indication: Supraventricular tachycardia
  5. CERTICAN [Suspect]
     Active Substance: EVEROLIMUS
     Indication: Rhabdomyoma
     Dosage: 0.125 MILLIGRAM, QD; AT 4005G BODY WEIGHT
  6. CERTICAN [Suspect]
     Active Substance: EVEROLIMUS
  7. CERTICAN [Suspect]
     Active Substance: EVEROLIMUS
  8. CERTICAN [Suspect]
     Active Substance: EVEROLIMUS
  9. CERTICAN [Suspect]
     Active Substance: EVEROLIMUS
  10. CERTICAN [Suspect]
     Active Substance: EVEROLIMUS
  11. METILDIGOXIN [Suspect]
     Active Substance: METILDIGOXIN
     Indication: Supraventricular tachycardia

REACTIONS (1)
  - Drug ineffective [Unknown]
